FAERS Safety Report 24035455 (Version 1)
Quarter: 2024Q3

REPORT INFORMATION
  Report Type: Spontaneous
  Country: US (occurrence: US)
  Receive Date: 20240701
  Receipt Date: 20240701
  Transmission Date: 20241017
  Serious: No
  Sender: PFIZER
  Company Number: US-PFIZER INC-202400202713

PATIENT
  Age: 74 Year
  Sex: Female

DRUGS (2)
  1. INLYTA [Suspect]
     Active Substance: AXITINIB
     Dosage: 2 MG, 2X/DAY (TWO 1MG TABLETS ORALLY TWICE DAILY)
     Route: 048
     Dates: start: 20230328
  2. PROLIA [Concomitant]
     Active Substance: DENOSUMAB
     Dosage: UNK

REACTIONS (3)
  - Burning sensation [Not Recovered/Not Resolved]
  - Oral discomfort [Not Recovered/Not Resolved]
  - Hyperkeratosis [Not Recovered/Not Resolved]
